FAERS Safety Report 8794310 (Version 2)
Quarter: 2012Q4

REPORT INFORMATION
  Report Type: 
  Country: JP (occurrence: JP)
  Receive Date: 20120917
  Receipt Date: 20121022
  Transmission Date: 20130627
  Serious: Yes (Other)
  Sender: FDA-Public Use
  Company Number: PHHY2012JP079856

PATIENT

DRUGS (1)
  1. NEORAL [Suspect]
     Indication: DERMATITIS ATOPIC
     Route: 048

REACTIONS (1)
  - Colitis ischaemic [Unknown]
